FAERS Safety Report 15807435 (Version 1)
Quarter: 2019Q1

REPORT INFORMATION
  Report Type: Spontaneous
  Country: US (occurrence: US)
  Receive Date: 20190110
  Receipt Date: 20190110
  Transmission Date: 20190417
  Serious: Yes (Death, Hospitalization)
  Sender: FDA-Public Use
  Company Number: PHHY2019US000844

PATIENT
  Age: 89 Year
  Sex: Male

DRUGS (1)
  1. METHOTREXATE. [Suspect]
     Active Substance: METHOTREXATE
     Indication: PEMPHIGUS
     Dosage: LONG-TERM WEEKLY DOSES
     Route: 065

REACTIONS (14)
  - Delirium [Fatal]
  - Purulence [Recovered/Resolved]
  - Product use in unapproved indication [Unknown]
  - Epstein-Barr virus associated lymphoproliferative disorder [Fatal]
  - Diffuse large B-cell lymphoma [Fatal]
  - Respiratory failure [Fatal]
  - Necrosis [Unknown]
  - Acne [Unknown]
  - Cellulitis [Unknown]
  - Infection [Unknown]
  - Haemorrhage [Unknown]
  - Mental status changes [Fatal]
  - Hypoxia [Fatal]
  - Nasal abscess [Unknown]
